FAERS Safety Report 22224085 (Version 7)
Quarter: 2023Q4

REPORT INFORMATION
  Report Type: Spontaneous
  Country: US (occurrence: US)
  Receive Date: 20230418
  Receipt Date: 20231229
  Transmission Date: 20240110
  Serious: No
  Sender: FDA-Public Use
  Company Number: US-PFIZER INC-PV202300069215

PATIENT
  Age: 65 Year
  Sex: Male

DRUGS (1)
  1. BOSULIF [Suspect]
     Active Substance: BOSUTINIB MONOHYDRATE
     Dosage: TAKE 400 MG PO DAILY
     Route: 048
     Dates: start: 20211227

REACTIONS (2)
  - Neoplasm progression [Unknown]
  - Malaise [Unknown]
